FAERS Safety Report 7883254-9 (Version None)
Quarter: 2011Q4

REPORT INFORMATION
  Report Type: 
  Country: None (occurrence: None)
  Receive Date: 20111102
  Receipt Date: 20111020
  Transmission Date: 20120403
  Serious: Yes (Life-Threatening, Hospitalization)
  Sender: FDA-Public Use
  Company Number: GB-RANBAXY-2011RR-48690

PATIENT
  Age: 69 Year
  Sex: Female

DRUGS (6)
  1. ACETAMINOPHEN AND CODEINE PHOSPHATE [Concomitant]
     Indication: PAIN
     Dosage: 8/500 MGUNK
     Route: 048
     Dates: start: 20100729
  2. FLUOXETINE HCL [Suspect]
     Indication: DEPRESSION
     Dosage: 20 MG, UNK
     Route: 065
  3. TOLTERODINE TARTRATE [Concomitant]
     Indication: POLLAKIURIA
     Dosage: 2 MG, UNK
     Route: 048
     Dates: start: 20001101
  4. LEVOTHYROXINE SODIUM [Concomitant]
     Indication: HYPOTHYROIDISM
     Dosage: 175 UG, UNK
     Route: 048
     Dates: start: 20040910
  5. NAPROXEN [Suspect]
     Indication: ARTHRALGIA
     Dosage: 500 MG, UNK
     Route: 048
     Dates: start: 19971224, end: 20110905
  6. IMIPRAMINE [Concomitant]
     Indication: DEPRESSION
     Dosage: 25 MG, UNK
     Route: 048
     Dates: start: 20010725

REACTIONS (6)
  - DIZZINESS [None]
  - HAEMOGLOBIN DECREASED [None]
  - GASTRIC ULCER [None]
  - UPPER GASTROINTESTINAL HAEMORRHAGE [None]
  - MALAISE [None]
  - HAEMATEMESIS [None]
